FAERS Safety Report 13786748 (Version 1)
Quarter: 2017Q3

REPORT INFORMATION
  Report Type: Spontaneous
  Country: US (occurrence: US)
  Receive Date: 20170725
  Receipt Date: 20170725
  Transmission Date: 20171127
  Serious: Yes (Disabling)
  Sender: FDA-Public Use
  Company Number: None

PATIENT
  Age: 60 Year
  Sex: Female
  Weight: 76.5 kg

DRUGS (9)
  1. PRAVASTATIN. [Concomitant]
     Active Substance: PRAVASTATIN
  2. CARVEDILOL. [Concomitant]
     Active Substance: CARVEDILOL
  3. COQ10 [Concomitant]
     Active Substance: UBIDECARENONE
  4. VIT B [Concomitant]
     Active Substance: VITAMIN B
  5. BIOTIN [Concomitant]
     Active Substance: BIOTIN
  6. PREBIOTIC [Concomitant]
  7. EFFEXOR [Suspect]
     Active Substance: VENLAFAXINE HYDROCHLORIDE
     Indication: DEPRESSION
     Route: 048
     Dates: start: 20100101, end: 20131215
  8. VITAMIN D [Concomitant]
     Active Substance: CHOLECALCIFEROL
  9. ASA [Concomitant]
     Active Substance: ASPIRIN

REACTIONS (8)
  - Vomiting [None]
  - Headache [None]
  - Abdominal pain upper [None]
  - Seizure [None]
  - Amnesia [None]
  - Paraesthesia [None]
  - Nausea [None]
  - Hallucination [None]

NARRATIVE: CASE EVENT DATE: 20140110
